FAERS Safety Report 21197079 (Version 2)
Quarter: 2022Q3

REPORT INFORMATION
  Report Type: Spontaneous
  Country: US (occurrence: US)
  Receive Date: 20220810
  Receipt Date: 20220811
  Transmission Date: 20221027
  Serious: No
  Sender: FDA-Public Use
  Company Number: US-PFIZER INC-202201049115

PATIENT
  Age: 66 Year
  Sex: Female

DRUGS (1)
  1. CELECOXIB [Suspect]
     Active Substance: CELECOXIB
     Indication: Back disorder
     Dosage: UNK

REACTIONS (6)
  - Drug ineffective [Unknown]
  - Off label use [Unknown]
  - Dizziness [Recovered/Resolved]
  - Dysstasia [Unknown]
  - Gait disturbance [Unknown]
  - Body height decreased [Not Recovered/Not Resolved]
